FAERS Safety Report 23816209 (Version 1)
Quarter: 2024Q2

REPORT INFORMATION
  Report Type: Spontaneous
  Country: EG (occurrence: EG)
  Receive Date: 20240503
  Receipt Date: 20240503
  Transmission Date: 20240716
  Serious: Yes (Hospitalization, Other)
  Sender: FDA-Public Use
  Company Number: EG-ELI_LILLY_AND_COMPANY-EG202404018848

PATIENT
  Age: 50 Year
  Sex: Female

DRUGS (2)
  1. HUMALOG [Suspect]
     Active Substance: INSULIN LISPRO
     Indication: Type 1 diabetes mellitus
     Dosage: 5 INTERNATIONAL UNIT, BID
     Route: 058
     Dates: start: 2019
  2. LANTUS [Concomitant]
     Active Substance: INSULIN GLARGINE
     Indication: Diabetes mellitus

REACTIONS (6)
  - Viral infection [Recovered/Resolved]
  - Vasculitis [Not Recovered/Not Resolved]
  - Peripheral artery occlusion [Recovering/Resolving]
  - Cataract [Not Recovered/Not Resolved]
  - Neuropathy peripheral [Not Recovered/Not Resolved]
  - Hypercholesterolaemia [Recovering/Resolving]

NARRATIVE: CASE EVENT DATE: 20190101
